FAERS Safety Report 18397344 (Version 1)
Quarter: 2020Q4

REPORT INFORMATION
  Report Type: Spontaneous
  Country: US (occurrence: US)
  Receive Date: 20201017
  Receipt Date: 20201017
  Transmission Date: 20210114
  Serious: No
  Sender: FDA-Public Use
  Company Number: None

PATIENT
  Sex: Female

DRUGS (2)
  1. TENOFOVIR [Suspect]
     Active Substance: TENOFOVIR
  2. NAPROXEN. [Suspect]
     Active Substance: NAPROXEN

REACTIONS (1)
  - Heart rate increased [None]
